FAERS Safety Report 4319084-4 (Version None)
Quarter: 2004Q1

REPORT INFORMATION
  Report Type: 
  Country: None (occurrence: None)
  Receive Date: 20040318
  Receipt Date: 20040318
  Transmission Date: 20041129
  Serious: No
  Sender: FDA-Public Use
  Company Number: None

PATIENT
  Age: 67 Year
  Sex: Male
  Weight: 68.4932 kg

DRUGS (2)
  1. COUMADIN [Suspect]
     Indication: ATRIAL FIBRILLATION
     Dosage: 5 MG M,T,TH SUN ; 2.5 MGW ORAL
     Route: 048
     Dates: start: 20040301, end: 20040309
  2. LEVAQUIN [Suspect]
     Indication: INFECTION
     Dosage: 500 MG EVERY DAY INTRAVENOUS
     Route: 042
     Dates: start: 20040307, end: 20040311

REACTIONS (1)
  - INTERNATIONAL NORMALISED RATIO INCREASED [None]
